FAERS Safety Report 5698258-4 (Version None)
Quarter: 2008Q2

REPORT INFORMATION
  Report Type: 
  Country: None (occurrence: None)
  Receive Date: 20080403
  Receipt Date: 20080322
  Transmission Date: 20081010
  Serious: Yes (Other)
  Sender: FDA-Public Use
  Company Number: 2008AP000718

PATIENT
  Age: 13 Year
  Sex: Male

DRUGS (1)
  1. DICLOFENAC POTASSIUM [Suspect]
     Indication: DENTAL TREATMENT
     Dosage: 50 MG;TAB; IX;

REACTIONS (1)
  - GRAND MAL CONVULSION [None]
